FAERS Safety Report 6612752-0 (Version None)
Quarter: 2010Q1

REPORT INFORMATION
  Report Type: 
  Country: None (occurrence: None)
  Receive Date: 20100303
  Receipt Date: 20100219
  Transmission Date: 20100710
  Serious: Yes (Other)
  Sender: FDA-Public Use
  Company Number: US-PFIZER INC-2010022733

PATIENT

DRUGS (2)
  1. VIAGRA [Suspect]
     Dosage: 25 MG, UNK
  2. NORVASC [Interacting]
     Dosage: UNK
     Dates: start: 20090101

REACTIONS (3)
  - CARDIAC PACEMAKER INSERTION [None]
  - DRUG INEFFECTIVE [None]
  - DRUG INTERACTION [None]
